FAERS Safety Report 21506487 (Version 4)
Quarter: 2022Q4

REPORT INFORMATION
  Report Type: Report from Study
  Country: US (occurrence: US)
  Receive Date: 20221026
  Receipt Date: 20221108
  Transmission Date: 20230113
  Serious: No
  Sender: FDA-Public Use
  Company Number: US-NOVARTISTESTPH-NVSC2022US238966

PATIENT
  Age: 32 Year
  Sex: Male

DRUGS (2)
  1. GLATOPA [Suspect]
     Active Substance: GLATIRAMER ACETATE
     Indication: Multiple sclerosis
     Dosage: 40 MG, Q48H
     Route: 058
     Dates: start: 20220620
  2. GLATOPA [Suspect]
     Active Substance: GLATIRAMER ACETATE
     Dosage: 40 MG, Q3W
     Route: 058

REACTIONS (3)
  - Palpatory finding abnormal [Not Recovered/Not Resolved]
  - Injection site scar [Unknown]
  - Drug ineffective [Unknown]

NARRATIVE: CASE EVENT DATE: 20221010
